FAERS Safety Report 18941454 (Version 4)
Quarter: 2021Q1

REPORT INFORMATION
  Report Type: Spontaneous
  Country: ES (occurrence: ES)
  Receive Date: 20210225
  Receipt Date: 20210312
  Transmission Date: 20210420
  Serious: Yes (Death, Other)
  Sender: FDA-Public Use
  Company Number: ES-PFIZER INC-2021191059

PATIENT
  Age: 78 Year
  Sex: Male
  Weight: 72 kg

DRUGS (1)
  1. ORFIDAL [Suspect]
     Active Substance: LORAZEPAM
     Dosage: UNK

REACTIONS (14)
  - Ocular icterus [Unknown]
  - Pulmonary oedema [Fatal]
  - Overdose [Fatal]
  - Abnormal dreams [Unknown]
  - Dysphonia [Unknown]
  - Musculoskeletal stiffness [Unknown]
  - Insomnia [Unknown]
  - Peripheral swelling [Unknown]
  - Swelling face [Unknown]
  - Tongue discolouration [Unknown]
  - Mobility decreased [Unknown]
  - Cardiac arrest [Fatal]
  - Hyperhidrosis [Unknown]
  - Speech disorder [Unknown]
